FAERS Safety Report 6342187-X (Version None)
Quarter: 2009Q3

REPORT INFORMATION
  Report Type: 
  Country: None (occurrence: None)
  Receive Date: 20090903
  Receipt Date: 20090903
  Transmission Date: 20100115
  Serious: Yes (Disabling, Other)
  Sender: FDA-Public Use
  Company Number: None

PATIENT
  Sex: Male
  Weight: 86.1834 kg

DRUGS (2)
  1. ZICAM COLD REMEDY NASAL GEL - 15L - NDC 62750-003- [Suspect]
     Indication: SINUS CONGESTION
     Dosage: ONE TWO NOSTRALS
     Dates: start: 20090416
  2. ZICAM ORAL CAUGH SUPPRESANT SPRAY, NDC-62750016-10. [Suspect]
     Indication: COUGH
     Dosage: FOUR 2 HOURS THROAT
     Dates: start: 20090416, end: 20090417

REACTIONS (6)
  - AGEUSIA [None]
  - ANOSMIA [None]
  - BURNING SENSATION [None]
  - NASAL DISCOMFORT [None]
  - SINUS DISORDER [None]
  - SINUS HEADACHE [None]
